FAERS Safety Report 11792811 (Version 8)
Quarter: 2018Q4

REPORT INFORMATION
  Report Type: Spontaneous
  Country: US (occurrence: US)
  Receive Date: 20151202
  Receipt Date: 20181119
  Transmission Date: 20190204
  Serious: Yes (Hospitalization, Other)
  Sender: FDA-Public Use
  Company Number: US-DSJP-DSU-2015-127455

PATIENT

DRUGS (1)
  1. BENICAR HCT [Suspect]
     Active Substance: HYDROCHLOROTHIAZIDE\OLMESARTAN MEDOXOMIL
     Indication: HYPERTENSION
     Dosage: 20-12.5 MG, UNK
     Dates: start: 20040729, end: 201505

REACTIONS (15)
  - Haemorrhoids [Unknown]
  - Nephrolithiasis [Unknown]
  - Large intestine polyp [Unknown]
  - Hepatic lesion [Unknown]
  - Urinary retention [Unknown]
  - Intestinal obstruction [Unknown]
  - Cholecystectomy [Unknown]
  - Pancreatic failure [Unknown]
  - Hepatic steatosis [Unknown]
  - Oesophageal ulcer [Unknown]
  - Diverticulitis [Unknown]
  - Sprue-like enteropathy [Recovering/Resolving]
  - Hiatus hernia [Unknown]
  - Diverticulum [Unknown]
  - Gastric disorder [Unknown]

NARRATIVE: CASE EVENT DATE: 2008
